FAERS Safety Report 10463852 (Version 1)
Quarter: 2014Q3

REPORT INFORMATION
  Report Type: Spontaneous
  Country: IN (occurrence: None)
  Receive Date: 20140917
  Receipt Date: 20140917
  Transmission Date: 20150326
  Serious: Yes (Hospitalization, Other)
  Sender: FDA-Public Use
  Company Number: 2014/067

PATIENT
  Age: 38 Year
  Sex: Female

DRUGS (1)
  1. OLANZAPINE (NO PREF. NAME) [Suspect]
     Active Substance: OLANZAPINE
     Indication: DELUSION
     Route: 030

REACTIONS (4)
  - Insomnia [None]
  - Restless legs syndrome [None]
  - Pruritus [None]
  - Snoring [None]
